FAERS Safety Report 11394330 (Version 2)
Quarter: 2015Q4

REPORT INFORMATION
  Report Type: Spontaneous
  Country: US (occurrence: US)
  Receive Date: 20150819
  Receipt Date: 20151116
  Transmission Date: 20160304
  Serious: No
  Sender: FDA-Public Use
  Company Number: US-TEVA-579345USA

PATIENT
  Sex: Male

DRUGS (1)
  1. ARIPIPRAZOLE. [Suspect]
     Active Substance: ARIPIPRAZOLE
     Indication: BIPOLAR DISORDER
     Route: 048
     Dates: start: 20150702

REACTIONS (5)
  - Product substitution issue [Unknown]
  - Treatment noncompliance [Unknown]
  - Anger [Not Recovered/Not Resolved]
  - Drug ineffective [Unknown]
  - Aggression [Not Recovered/Not Resolved]

NARRATIVE: CASE EVENT DATE: 2015
